FAERS Safety Report 10749279 (Version 3)
Quarter: 2015Q2

REPORT INFORMATION
  Report Type: Spontaneous
  Country: US (occurrence: US)
  Receive Date: 20150129
  Receipt Date: 20150402
  Transmission Date: 20150821
  Serious: No
  Sender: FDA-Public Use
  Company Number: US-PFIZER INC-2015032402

PATIENT
  Age: 7 Year
  Sex: Male
  Weight: 42 kg

DRUGS (1)
  1. CHILDRENS ADVIL [Suspect]
     Active Substance: IBUPROFEN
     Dosage: UNK
     Dates: start: 201408

REACTIONS (2)
  - Product quality issue [Unknown]
  - Lip discolouration [Unknown]
